FAERS Safety Report 6595726-8 (Version None)
Quarter: 2010Q1

REPORT INFORMATION
  Report Type: 
  Country: None (occurrence: None)
  Receive Date: 20100219
  Receipt Date: 20100219
  Transmission Date: 20100710
  Serious: Yes (Life-Threatening, Disabling)
  Sender: FDA-Public Use
  Company Number: None

PATIENT
  Age: 59 Year
  Sex: Male
  Weight: 102.0593 kg

DRUGS (2)
  1. CRESTOR [Suspect]
     Indication: BLOOD CHOLESTEROL INCREASED
     Dosage: 10MG TABS. 1 TIME A DAY
  2. PRAVASTATIN SODIUM [Suspect]
     Indication: BLOOD CHOLESTEROL INCREASED
     Dosage: 20MG TAB 1 TIME + DAY
     Dates: start: 20100106

REACTIONS (4)
  - ABDOMINAL PAIN UPPER [None]
  - DISEASE COMPLICATION [None]
  - LIVER DISORDER [None]
  - RENAL DISORDER [None]
